FAERS Safety Report 5742642-7 (Version None)
Quarter: 2008Q2

REPORT INFORMATION
  Report Type: 
  Country: None (occurrence: None)
  Receive Date: 20080515
  Receipt Date: 20080515
  Transmission Date: 20081010
  Serious: Yes (Disabling, Other)
  Sender: FDA-Public Use
  Company Number: None

PATIENT
  Age: 42 Year
  Sex: Male
  Weight: 90.7194 kg

DRUGS (1)
  1. CYMBALTA [Suspect]
     Indication: DEPRESSION
     Dosage: 60MG 2X A DAY ORAL
     Route: 048
     Dates: start: 20050220, end: 20060730

REACTIONS (3)
  - AGGRESSION [None]
  - LOSS OF EMPLOYMENT [None]
  - PERSONALITY CHANGE [None]
